FAERS Safety Report 23975553 (Version 2)
Quarter: 2024Q4

REPORT INFORMATION
  Report Type: Spontaneous
  Country: US (occurrence: US)
  Receive Date: 20240614
  Receipt Date: 20241018
  Transmission Date: 20250115
  Serious: No
  Sender: UCB
  Company Number: US-UCBSA-2024024490

PATIENT
  Sex: Female

DRUGS (1)
  1. BIMZELX [Suspect]
     Active Substance: BIMEKIZUMAB-BKZX
     Indication: Psoriasis
     Dosage: 320 MILLIGRAM, EV 4 WEEKS FOR 16 WEEKS THEN 2 PENS (320MG) EVERY 8 WEEKS THEREAFTER
     Route: 058
     Dates: start: 202403

REACTIONS (2)
  - Emotional disorder [Unknown]
  - Mood swings [Unknown]

NARRATIVE: CASE EVENT DATE: 20240101
